FAERS Safety Report 10203076 (Version 1)
Quarter: 2014Q2

REPORT INFORMATION
  Report Type: Spontaneous
  Country: US (occurrence: US)
  Receive Date: 20140529
  Receipt Date: 20140529
  Transmission Date: 20141212
  Serious: Yes (Other)
  Sender: FDA-Public Use
  Company Number: US-ROCHE-1407378

PATIENT
  Age: 37 Year
  Sex: Female
  Weight: 60.84 kg

DRUGS (6)
  1. PEGASYS [Suspect]
     Indication: HEPATITIS C
     Route: 058
     Dates: start: 20140508
  2. RIBASPHERE [Suspect]
     Indication: HEPATITIS C
     Dosage: DIVIDED BID
     Route: 048
     Dates: start: 20140508
  3. SOVALDI [Suspect]
     Indication: HEPATITIS C
     Route: 048
     Dates: start: 20140508
  4. METFORMIN [Concomitant]
     Route: 065
  5. GABAPENTIN [Concomitant]
  6. TRAMADOL [Concomitant]

REACTIONS (2)
  - Gingival bleeding [Unknown]
  - Contusion [Unknown]
